FAERS Safety Report 6520630-0 (Version None)
Quarter: 2009Q4

REPORT INFORMATION
  Report Type: 
  Country: None (occurrence: None)
  Receive Date: 20091229
  Receipt Date: 20091207
  Transmission Date: 20100525
  Serious: Yes (Life-Threatening)
  Sender: FDA-Public Use
  Company Number: US-BAYER-200917762BCC

PATIENT
  Age: 49 Year
  Sex: Female

DRUGS (8)
  1. ALKA SELTZER [Suspect]
     Indication: NASOPHARYNGITIS
     Dosage: TOTAL DAILY DOSE: 1 DF
     Route: 048
     Dates: start: 20080510, end: 20080510
  2. ALKA SELTZER [Suspect]
     Route: 048
     Dates: start: 20080511
  3. PROZAC [Concomitant]
     Route: 065
  4. SYNTHROID [Concomitant]
     Route: 065
  5. ACTOS [Concomitant]
     Route: 065
  6. METFORMIN [Concomitant]
     Route: 065
  7. STARLIX [Concomitant]
     Route: 065
  8. ADVAIR DISKUS 100/50 [Concomitant]
     Route: 065

REACTIONS (13)
  - DEPRESSED LEVEL OF CONSCIOUSNESS [None]
  - DIABETES MELLITUS [None]
  - DIABETES MELLITUS INADEQUATE CONTROL [None]
  - DYSPNOEA [None]
  - HYPERAEMIA [None]
  - HYPERSENSITIVITY [None]
  - LACRIMATION INCREASED [None]
  - OCULAR HYPERAEMIA [None]
  - OROPHARYNGEAL PAIN [None]
  - RASH [None]
  - RHONCHI [None]
  - SENSATION OF FOREIGN BODY [None]
  - UNRESPONSIVE TO STIMULI [None]
